FAERS Safety Report 18815934 (Version 1)
Quarter: 2021Q1

REPORT INFORMATION
  Report Type: Spontaneous
  Country: US (occurrence: US)
  Receive Date: 20210201
  Receipt Date: 20210201
  Transmission Date: 20210419
  Serious: Yes (Hospitalization)
  Sender: FDA-Public Use
  Company Number: None

PATIENT
  Age: 64 Year
  Sex: Female

DRUGS (9)
  1. REPATHA [Suspect]
     Active Substance: EVOLOCUMAB
     Indication: HYPERCHOLESTEROLAEMIA
     Dosage: ?          OTHER FREQUENCY:TWICE MONTHLY;?
     Route: 058
     Dates: start: 20160707
  2. MOXIFLOXACIN. [Concomitant]
     Active Substance: MOXIFLOXACIN
  3. DULOXETINE. [Concomitant]
     Active Substance: DULOXETINE
  4. METOPROLOL. [Concomitant]
     Active Substance: METOPROLOL
  5. QVAR [Concomitant]
     Active Substance: BECLOMETHASONE DIPROPIONATE
  6. ELIQUIS [Concomitant]
     Active Substance: APIXABAN
  7. LISINOPRIL. [Concomitant]
     Active Substance: LISINOPRIL
  8. AZITHROMYCIN ANHYDROUS. [Concomitant]
     Active Substance: AZITHROMYCIN ANHYDROUS
  9. XARELTO [Concomitant]
     Active Substance: RIVAROXABAN

REACTIONS (1)
  - Knee operation [None]

NARRATIVE: CASE EVENT DATE: 20210118
